FAERS Safety Report 7366824-6 (Version None)
Quarter: 2011Q1

REPORT INFORMATION
  Report Type: 
  Country: None (occurrence: None)
  Receive Date: 20110322
  Receipt Date: 20110320
  Transmission Date: 20110831
  Serious: Yes (Other)
  Sender: FDA-Public Use
  Company Number: US-PFIZER INC-2011060827

PATIENT
  Sex: Female
  Weight: 15 kg

DRUGS (1)
  1. ADVIL CHILDREN [Suspect]
     Indication: PYREXIA
     Dosage: UNK
     Route: 048
     Dates: start: 20110319

REACTIONS (3)
  - SOMNOLENCE [None]
  - DYSARTHRIA [None]
  - GAIT DISTURBANCE [None]
